FAERS Safety Report 7691239-0 (Version None)
Quarter: 2011Q3

REPORT INFORMATION
  Report Type: 
  Country: None (occurrence: None)
  Receive Date: 20110818
  Receipt Date: 20110810
  Transmission Date: 20111222
  Serious: Yes (Other)
  Sender: FDA-Public Use
  Company Number: JP-ASTRAZENECA-2011SE43375

PATIENT
  Age: 21442 Day
  Sex: Female

DRUGS (19)
  1. SEROQUEL [Suspect]
     Route: 048
     Dates: start: 20070905, end: 20071120
  2. GASMOTIN [Concomitant]
     Indication: CONSTIPATION
     Route: 048
  3. DEPAKENE [Suspect]
     Route: 048
     Dates: start: 20070613, end: 20070808
  4. SEROQUEL [Suspect]
     Route: 048
     Dates: start: 20071121, end: 20110307
  5. TASMOLIN [Concomitant]
     Indication: PARKINSONISM
     Route: 048
  6. MAGNESIUM OXIDE [Concomitant]
     Indication: CONSTIPATION
     Route: 048
  7. BLONANSERIN [Concomitant]
     Indication: SCHIZOPHRENIA
     Route: 048
     Dates: start: 20090404
  8. SEROQUEL [Suspect]
     Indication: SCHIZOPHRENIA
     Route: 048
     Dates: start: 20070822, end: 20070904
  9. SEROQUEL [Suspect]
     Route: 048
  10. DEPAKENE [Suspect]
     Route: 048
     Dates: start: 20110712
  11. DEPAKENE [Suspect]
     Route: 048
     Dates: start: 20070809, end: 20100928
  12. DEPAKENE [Suspect]
     Route: 048
     Dates: start: 20100929, end: 20110711
  13. BARNETIL [Concomitant]
     Indication: SCHIZOPHRENIA
     Route: 048
  14. RISPERDAL CONSTA [Concomitant]
     Indication: SCHIZOPHRENIA
     Dates: start: 20091111
  15. DEPAKENE [Suspect]
     Indication: SCHIZOPHRENIA
     Route: 048
     Dates: end: 20070612
  16. SEROQUEL [Suspect]
     Route: 048
     Dates: start: 20110308
  17. SEROQUEL [Suspect]
     Route: 048
     Dates: end: 20110719
  18. RISPERDAL [Concomitant]
     Indication: SCHIZOPHRENIA
     Route: 048
  19. PURSENNID [Concomitant]
     Indication: CONSTIPATION
     Route: 048
     Dates: start: 20070824

REACTIONS (1)
  - PANCYTOPENIA [None]
